FAERS Safety Report 4342122-X (Version None)
Quarter: 2004Q1

REPORT INFORMATION
  Report Type: 
  Country: None (occurrence: None)
  Receive Date: 20040329
  Receipt Date: 20040203
  Transmission Date: 20041129
  Serious: No
  Sender: FDA-Public Use
  Company Number: 04P-163-0249260-00

PATIENT
  Age: 52 Year
  Sex: Female
  Weight: 73.4827 kg

DRUGS (8)
  1. HUMIRA [Suspect]
     Indication: RHEUMATOID ARTHRITIS
     Dosage: 40 MG IN 2 WK SUBCUTANEOUS
     Route: 058
     Dates: start: 20031129
  2. SULFASALAZINE [Concomitant]
  3. PREDNISONE [Concomitant]
  4. DICLOFENAC SODIUM [Concomitant]
  5. DENACAR HCT [Concomitant]
  6. CONJUGATED ESTROGEN [Concomitant]
  7. LEVOTHYROXINE SODIUM [Concomitant]
  8. BUPROPION HYDROCHLORIDE [Concomitant]

REACTIONS (2)
  - INJECTION SITE HAEMORRHAGE [None]
  - INJECTION SITE PAIN [None]
